FAERS Safety Report 7273150-2 (Version None)
Quarter: 2011Q1

REPORT INFORMATION
  Report Type: 
  Country: None (occurrence: None)
  Receive Date: 20110203
  Receipt Date: 20110124
  Transmission Date: 20110831
  Serious: Yes (Other)
  Sender: FDA-Public Use
  Company Number: NO-JNJFOC-20110104891

PATIENT
  Age: 34 Year
  Sex: Male

DRUGS (4)
  1. REMICADE [Suspect]
     Indication: COLITIS ULCERATIVE
     Route: 042
  2. URSO FALK [Concomitant]
     Indication: CHOLANGITIS SCLEROSING
     Dosage: DOSE 500 X 2 DAILY
  3. LEVOTHYROXINE SODIUM [Concomitant]
     Indication: HYPOTHYROIDISM
  4. PENTASA [Concomitant]
     Indication: COLITIS ULCERATIVE

REACTIONS (7)
  - URTICARIA [None]
  - INFUSION RELATED REACTION [None]
  - DYSPNOEA [None]
  - PRURITUS [None]
  - BRONCHOSPASM [None]
  - HYPERSENSITIVITY [None]
  - TACHYCARDIA [None]
